FAERS Safety Report 18890001 (Version 1)
Quarter: 2021Q1

REPORT INFORMATION
  Report Type: Report from Study
  Country: US (occurrence: US)
  Receive Date: 20210213
  Receipt Date: 20210213
  Transmission Date: 20210420
  Serious: Yes (Death, Hospitalization)
  Sender: FDA-Public Use
  Company Number: US-SEATTLE GENETICS-2021SGN00420

PATIENT
  Age: 63 Year
  Sex: Female

DRUGS (1)
  1. TUCATINIB [Suspect]
     Active Substance: TUCATINIB
     Indication: BREAST CANCER FEMALE
     Dosage: UNK
     Route: 065

REACTIONS (8)
  - Adverse reaction [Unknown]
  - Swelling [Unknown]
  - Product dose omission issue [Unknown]
  - Hyperphagia [Unknown]
  - Vomiting [Unknown]
  - Diarrhoea [Unknown]
  - Death [Fatal]
  - Lethargy [Unknown]

NARRATIVE: CASE EVENT DATE: 20210131
